FAERS Safety Report 23482764 (Version 1)
Quarter: 2024Q1

REPORT INFORMATION
  Report Type: Spontaneous
  Country: CA (occurrence: CA)
  Receive Date: 20240205
  Receipt Date: 20240205
  Transmission Date: 20240410
  Serious: Yes (Other)
  Sender: FDA-Public Use
  Company Number: CA-PFIZER INC-202300307869

PATIENT
  Age: 40 Year
  Sex: Male

DRUGS (2)
  1. RUXIENCE [Suspect]
     Active Substance: RITUXIMAB-PVVR
     Indication: Glomerulonephritis membranous
     Dosage: 1 G X 2 DOSES (14 DAYS APART), THEN 1 G EVERY 6 MONTHS
     Route: 042
     Dates: start: 20240117
  2. RUXIENCE [Suspect]
     Active Substance: RITUXIMAB-PVVR
     Dosage: 1 G X 2 DOSES (14 DAYS APART), THEN 1 G EVERY 6 MONTHS (MG, DAY 15 RETREATMENT)
     Route: 042
     Dates: start: 20240131

REACTIONS (5)
  - Trismus [Recovering/Resolving]
  - Pruritus [Recovered/Resolved]
  - Throat irritation [Recovered/Resolved]
  - Insomnia [Not Recovered/Not Resolved]
  - Off label use [Unknown]

NARRATIVE: CASE EVENT DATE: 20240117
